FAERS Safety Report 17761466 (Version 1)
Quarter: 2020Q2

REPORT INFORMATION
  Report Type: Spontaneous
  Country: CA (occurrence: CA)
  Receive Date: 20200508
  Receipt Date: 20200508
  Transmission Date: 20200714
  Serious: Yes (Other)
  Sender: FDA-Public Use
  Company Number: CA-TEVA-2020-CA-1231751

PATIENT
  Age: 42 Year
  Sex: Female

DRUGS (20)
  1. LEFLUNOMIDE (MAH UNKNOWN) [Suspect]
     Active Substance: LEFLUNOMIDE
     Indication: PRODUCT USED FOR UNKNOWN INDICATION
     Route: 065
  2. CIMZIA [Suspect]
     Active Substance: CERTOLIZUMAB PEGOL
     Indication: RHEUMATOID ARTHRITIS
     Route: 058
  3. PERIOGARD [Suspect]
     Active Substance: CHLORHEXIDINE GLUCONATE
     Indication: PRODUCT USED FOR UNKNOWN INDICATION
     Route: 065
  4. METHOTREXATE. [Suspect]
     Active Substance: METHOTREXATE
     Indication: PRODUCT USED FOR UNKNOWN INDICATION
     Route: 065
  5. ORENCIA [Suspect]
     Active Substance: ABATACEPT
     Indication: PRODUCT USED FOR UNKNOWN INDICATION
     Route: 065
  6. HYDROCHLOROQUINE [Concomitant]
     Active Substance: HYDROXYCHLOROQUINE SULFATE
  7. OXYCODONE [Suspect]
     Active Substance: OXYCODONE
     Indication: PRODUCT USED FOR UNKNOWN INDICATION
     Route: 065
  8. OXYCODONE TEREPHTHALATE [Suspect]
     Active Substance: OXYCODONE TEREPHTHALATE
     Indication: PRODUCT USED FOR UNKNOWN INDICATION
     Route: 065
  9. ASCORBIC ACID (VITAMIN C) [Concomitant]
     Active Substance: ASCORBIC ACID
  10. IBUPROFEN. [Concomitant]
     Active Substance: IBUPROFEN
  11. PANTOPRAZOLE [Concomitant]
     Active Substance: PANTOPRAZOLE
  12. PREDNISONE. [Concomitant]
     Active Substance: PREDNISONE
  13. ERGOCALCIFEROL. [Concomitant]
     Active Substance: ERGOCALCIFEROL
  14. REACTINE [Concomitant]
  15. ACTEMRA [Suspect]
     Active Substance: TOCILIZUMAB
     Indication: PRODUCT USED FOR UNKNOWN INDICATION
     Route: 065
  16. SIMPONI [Suspect]
     Active Substance: GOLIMUMAB
     Indication: PRODUCT USED FOR UNKNOWN INDICATION
     Route: 058
  17. ACETAMINOPHEN. [Suspect]
     Active Substance: ACETAMINOPHEN
     Indication: PRODUCT USED FOR UNKNOWN INDICATION
     Route: 065
  18. ENBREL [Suspect]
     Active Substance: ETANERCEPT
     Indication: RHEUMATOID ARTHRITIS
     Route: 065
  19. TYLENOL [Concomitant]
     Active Substance: ACETAMINOPHEN
  20. VENTOLIN [Concomitant]
     Active Substance: ALBUTEROL SULFATE

REACTIONS (10)
  - Insomnia [Unknown]
  - Pruritus [Unknown]
  - Ear pain [Unknown]
  - Lower respiratory tract infection [Unknown]
  - Abdominal pain upper [Unknown]
  - Asthenia [Unknown]
  - Body temperature increased [Unknown]
  - Headache [Unknown]
  - Rash [Unknown]
  - Urticaria [Unknown]
